FAERS Safety Report 19077630 (Version 1)
Quarter: 2021Q1

REPORT INFORMATION
  Report Type: Spontaneous
  Country: NL (occurrence: NL)
  Receive Date: 20210331
  Receipt Date: 20210331
  Transmission Date: 20210420
  Serious: Yes (Other)
  Sender: FDA-Public Use
  Company Number: NL-ROCHE-2801283

PATIENT
  Age: 76 Year

DRUGS (2)
  1. RITUXIMAB. [Suspect]
     Active Substance: RITUXIMAB
     Indication: B-CELL SMALL LYMPHOCYTIC LYMPHOMA
     Route: 065
  2. LEUKERAN [Concomitant]
     Active Substance: CHLORAMBUCIL

REACTIONS (1)
  - Capillary leak syndrome [Unknown]
